FAERS Safety Report 6164467-3 (Version None)
Quarter: 2009Q2

REPORT INFORMATION
  Report Type: 
  Country: None (occurrence: None)
  Receive Date: 20090421
  Receipt Date: 20090406
  Transmission Date: 20091009
  Serious: Yes (Other)
  Sender: FDA-Public Use
  Company Number: 2009S1004124

PATIENT
  Age: 18 Year
  Sex: Female
  Weight: 49.8957 kg

DRUGS (2)
  1. ZONISAMIDE [Suspect]
     Indication: CONVULSION
     Dosage: 50 MG; AT BEDTIME; ORAL
     Route: 048
     Dates: start: 20080819, end: 20090214
  2. ZONISAMIDE [Suspect]
     Indication: CONVULSION
     Dosage: 25 MG; AT BEDRIME; ORAL
     Route: 048
     Dates: start: 20090119, end: 20090214

REACTIONS (7)
  - ANXIETY [None]
  - APPARENT DEATH [None]
  - CRYING [None]
  - DYSPHAGIA [None]
  - PARAESTHESIA [None]
  - PSYCHOTIC DISORDER [None]
  - STRESS [None]
